FAERS Safety Report 14914385 (Version 1)
Quarter: 2018Q2

REPORT INFORMATION
  Report Type: Spontaneous
  Country: ES (occurrence: ES)
  Receive Date: 20180518
  Receipt Date: 20180518
  Transmission Date: 20180711
  Serious: Yes (Other)
  Sender: FDA-Public Use
  Company Number: ES-JAZZ-2018-ES-004923

PATIENT
  Age: 7 Year
  Sex: Female

DRUGS (1)
  1. XYREM [Suspect]
     Active Substance: SODIUM OXYBATE
     Indication: NARCOLEPSY
     Dosage: UNKNOWN DOSE
     Route: 048

REACTIONS (4)
  - Cataplexy [Unknown]
  - Binge eating [Unknown]
  - Psychotic disorder [Unknown]
  - Hallucination, auditory [Unknown]
